FAERS Safety Report 10994739 (Version 1)
Quarter: 2015Q2

REPORT INFORMATION
  Report Type: Spontaneous
  Country: US (occurrence: None)
  Receive Date: 20150406
  Receipt Date: 20150406
  Transmission Date: 20150821
  Serious: Yes (Other)
  Sender: FDA-Public Use
  Company Number: None

PATIENT
  Age: 76 Year
  Sex: Female

DRUGS (11)
  1. CALCIUM [Concomitant]
     Active Substance: CALCIUM
  2. LOSARTIN [Concomitant]
     Active Substance: LOSARTAN
  3. DILATIZEN [Concomitant]
  4. VITAMIN C [Concomitant]
     Active Substance: ASCORBIC ACID
  5. CELEBREX [Concomitant]
     Active Substance: CELECOXIB
  6. GABAPENTIN. [Concomitant]
     Active Substance: GABAPENTIN
  7. POTASSIUM OSTEO-BIFLEX [Concomitant]
  8. CELECOXIB. [Suspect]
     Active Substance: CELECOXIB
     Indication: ARTHRITIS
     Route: 048
     Dates: start: 20150220, end: 20150307
  9. WARFARIN [Concomitant]
     Active Substance: WARFARIN
  10. VITAMIN COMPLETE [Concomitant]
  11. VITAMIN D [Concomitant]
     Active Substance: CHOLECALCIFEROL

REACTIONS (4)
  - Pain in extremity [None]
  - Product substitution issue [None]
  - Gait disturbance [None]
  - Muscle rupture [None]

NARRATIVE: CASE EVENT DATE: 20150307
